FAERS Safety Report 9227871 (Version 1)
Quarter: 2013Q2

REPORT INFORMATION
  Report Type: Spontaneous
  Country: US (occurrence: None)
  Receive Date: 20130411
  Receipt Date: 20130411
  Transmission Date: 20140414
  Serious: Yes (Disabling)
  Sender: FDA-Public Use
  Company Number: None

PATIENT
  Age: 47 Year
  Sex: Female

DRUGS (1)
  1. METOCLOPRAMIDE [Suspect]
     Dosage: 10MG ACHS PO
     Route: 048
     Dates: start: 20101220, end: 20110106

REACTIONS (6)
  - Tardive dyskinesia [None]
  - Grimacing [None]
  - Anger [None]
  - Post-traumatic stress disorder [None]
  - Frustration [None]
  - Depressed mood [None]
